FAERS Safety Report 4966972-1 (Version None)
Quarter: 2006Q2

REPORT INFORMATION
  Report Type: 
  Country: None (occurrence: None)
  Receive Date: 20060403
  Receipt Date: 20060323
  Transmission Date: 20061013
  Serious: Yes (Hospitalization, Disabling, Other)
  Sender: FDA-Public Use
  Company Number: 2006041391

PATIENT
  Sex: Female

DRUGS (3)
  1. NORVASC [Suspect]
     Indication: HYPERTENSION
     Dosage: 10 MG (10 MG, DAILY), UNKNOWN
     Route: 065
  2. FUROSEMIDE [Concomitant]
  3. AMBIEN [Concomitant]

REACTIONS (6)
  - CEREBROVASCULAR ACCIDENT [None]
  - DYSPHASIA [None]
  - FACIAL PALSY [None]
  - HIP FRACTURE [None]
  - OVERWEIGHT [None]
  - UPPER LIMB FRACTURE [None]
